FAERS Safety Report 25844121 (Version 1)
Quarter: 2025Q3

REPORT INFORMATION
  Report Type: Report from Study
  Country: EU (occurrence: EU)
  Receive Date: 20250925
  Receipt Date: 20250925
  Transmission Date: 20251021
  Serious: Yes (Hospitalization)
  Sender: SANOFI AVENTIS
  Company Number: EU-SA-2025SA281739

PATIENT
  Age: 39 Year
  Sex: Female

DRUGS (1)
  1. ALEMTUZUMAB [Suspect]
     Active Substance: ALEMTUZUMAB
     Indication: Relapsing multiple sclerosis
     Route: 041
     Dates: end: 20160502

REACTIONS (1)
  - Presyncope [Recovered/Resolved]

NARRATIVE: CASE EVENT DATE: 20160502
